FAERS Safety Report 8378321-X (Version None)
Quarter: 2012Q2

REPORT INFORMATION
  Report Type: 
  Country: None (occurrence: None)
  Receive Date: 20120522
  Receipt Date: 20120519
  Transmission Date: 20120825
  Serious: Yes (Hospitalization, Other)
  Sender: FDA-Public Use
  Company Number: PHHY2011JP55804

PATIENT
  Age: 75 Year
  Sex: Female
  Weight: 53.3 kg

DRUGS (5)
  1. IMATINIB MESYLATE [Suspect]
     Dosage: 100 MG, DAILY  3 TIMES PER WEEK
     Route: 048
     Dates: start: 20071001, end: 20071101
  2. IMATINIB MESYLATE [Suspect]
     Dosage: 400 MG, DAILY, 3 TIMES PER WEEK
     Route: 048
     Dates: start: 20071101
  3. SCOPOLAMINE [Suspect]
     Dosage: UNK
  4. IMATINIB MESYLATE [Suspect]
     Indication: CHRONIC MYELOID LEUKAEMIA
     Dosage: 400 MG, DAILY, 3 TIMES PER WEEK
     Route: 048
     Dates: start: 20011201
  5. FLUMAZENIL [Suspect]
     Dosage: UNK

REACTIONS (12)
  - BONE MARROW FAILURE [None]
  - GASTROINTESTINAL DISORDER [None]
  - THROMBOCYTOPENIA [None]
  - NAUSEA [None]
  - ANAEMIA [None]
  - DIARRHOEA HAEMORRHAGIC [None]
  - BLOOD PRESSURE ABNORMAL [None]
  - AGRANULOCYTOSIS [None]
  - LEUKOPENIA [None]
  - RASH [None]
  - PYREXIA [None]
  - HAEMATOTOXICITY [None]
